FAERS Safety Report 11919723 (Version 2)
Quarter: 2016Q1

REPORT INFORMATION
  Report Type: Spontaneous
  Country: US (occurrence: US)
  Receive Date: 20160115
  Receipt Date: 20160204
  Transmission Date: 20160526
  Serious: Yes (Hospitalization)
  Sender: FDA-Public Use
  Company Number: US-BEH-2016057586

PATIENT
  Age: 76 Year
  Sex: Male
  Weight: 112 kg

DRUGS (12)
  1. COQ [Concomitant]
  2. VITAMIN D [Concomitant]
     Active Substance: CHOLECALCIFEROL
  3. BERINERT [Suspect]
     Active Substance: HUMAN C1-ESTERASE INHIBITOR
     Indication: HEREDITARY ANGIOEDEMA
     Dosage: DOSAGE FREQUENCY: AS DIRECTED
     Route: 042
     Dates: start: 20140404
  4. NITROSTAT [Concomitant]
     Active Substance: NITROGLYCERIN
  5. ASPIRIN. [Concomitant]
     Active Substance: ASPIRIN
  6. FLOMAX [Concomitant]
     Active Substance: TAMSULOSIN HYDROCHLORIDE
  7. SPIRIVA [Concomitant]
     Active Substance: TIOTROPIUM BROMIDE MONOHYDRATE
  8. FINASTERIDE. [Concomitant]
     Active Substance: FINASTERIDE
  9. NOROCO [Concomitant]
  10. NORVASC [Concomitant]
     Active Substance: AMLODIPINE BESYLATE
  11. METOPROLOL. [Concomitant]
     Active Substance: METOPROLOL
  12. AZELASTINE [Concomitant]
     Active Substance: AZELASTINE

REACTIONS (1)
  - Dental operation [Recovered/Resolved]

NARRATIVE: CASE EVENT DATE: 20151204
